FAERS Safety Report 5074699-3 (Version None)
Quarter: 2006Q3

REPORT INFORMATION
  Report Type: 
  Country: None (occurrence: None)
  Receive Date: 20060803
  Receipt Date: 20060721
  Transmission Date: 20061208
  Serious: Yes (Hospitalization)
  Sender: FDA-Public Use
  Company Number: 2006PV017978

PATIENT
  Age: 78 Year
  Sex: Male
  Weight: 95.2554 kg

DRUGS (16)
  1. BYETTA [Suspect]
     Indication: DIABETES MELLITUS NON-INSULIN-DEPENDENT
     Dosage: SEE IMAGE
     Route: 058
     Dates: start: 20060601, end: 20060708
  2. BYETTA [Suspect]
     Indication: DIABETES MELLITUS NON-INSULIN-DEPENDENT
     Dosage: SEE IMAGE
     Route: 058
     Dates: start: 20060708, end: 20060714
  3. BACLOFEN [Suspect]
     Indication: HICCUPS
     Dosage: PRN; PO
     Route: 048
     Dates: start: 20060713
  4. HYDROCODONE BITARTRATE + ACETAMINOPHEN [Suspect]
     Indication: DRUG USE FOR UNKNOWN INDICATION
     Dosage: PRN; PO
     Route: 048
  5. ACTOS [Concomitant]
  6. PRAVASTATIN [Concomitant]
  7. ACEON [Concomitant]
  8. DIOVAN [Concomitant]
  9. COREG [Concomitant]
  10. FUROSEMIDE [Concomitant]
  11. AVODART [Concomitant]
  12. FLOMAX [Concomitant]
  13. CYCLOBENZAPRINE HCL [Concomitant]
  14. ALLOPURINOL [Concomitant]
  15. THYROID TAB [Concomitant]
  16. ZEGERID [Concomitant]

REACTIONS (7)
  - DEPRESSED LEVEL OF CONSCIOUSNESS [None]
  - DRUG TOXICITY [None]
  - HALLUCINATION [None]
  - HICCUPS [None]
  - HYPOAESTHESIA [None]
  - MENTAL STATUS CHANGES [None]
  - PARAESTHESIA [None]
